FAERS Safety Report 17892037 (Version 1)
Quarter: 2020Q2

REPORT INFORMATION
  Report Type: Spontaneous
  Country: DE (occurrence: DE)
  Receive Date: 20200612
  Receipt Date: 20200612
  Transmission Date: 20200714
  Serious: Yes (Congenital Anomaly)
  Sender: FDA-Public Use
  Company Number: DE-ASCEND THERAPEUTICS US, LLC-2085733

PATIENT
  Age: 2 Month
  Sex: Male
  Weight: 3.62 kg

DRUGS (10)
  1. ADVANTAN (MISOPROSTOL), UNKNOWN?INDICATION FOR USE: ECZEMA [Concomitant]
     Route: 064
  2. ASS 100 (ACETYLSALICYCLIC), UNKNOWN?INDICATION FOR USE: PROPHYLACTIC [Concomitant]
     Route: 064
  3. ESTROGEL [Suspect]
     Active Substance: ESTRADIOL
  4. METFORMIN [Suspect]
     Active Substance: METFORMIN HYDROCHLORIDE
     Route: 064
     Dates: start: 20181221, end: 20191002
  5. GYNOKADIN (ESTRADIOL HEMIHYDRATE) (GEL) 191095 [Suspect]
     Active Substance: ESTRADIOL HEMIHYDRATE
  6. CYTOTEC [Concomitant]
     Active Substance: MISOPROSTOL
     Route: 064
  7. UTROGEST (PROGESTERONE) [Suspect]
     Active Substance: PROGESTERONE
     Route: 064
  8. ESTROGEL [Suspect]
     Active Substance: ESTRADIOL
     Indication: INFERTILITY FEMALE
     Route: 064
  9. PROGYNOVA [ESTRADIOL VALERATE] [Suspect]
     Active Substance: ESTRADIOL VALERATE
     Route: 064
  10. PROLUTEX (PROGESTERONE), UNKNOWN?INDICATION FOR USE: FEMALE INFERTILIT [Suspect]
     Active Substance: PROGESTERONE
     Route: 064

REACTIONS (2)
  - Congenital coronary artery malformation [Unknown]
  - Atrial septal defect [Unknown]
